FAERS Safety Report 5214211-9 (Version None)
Quarter: 2007Q1

REPORT INFORMATION
  Report Type: 
  Country: None (occurrence: None)
  Receive Date: 20070122
  Receipt Date: 20070110
  Transmission Date: 20070707
  Serious: Yes (Other)
  Sender: FDA-Public Use
  Company Number: US-ROCHE-477813

PATIENT
  Age: 17 Year
  Sex: Male

DRUGS (1)
  1. TAMIFLU [Suspect]
     Indication: PROPHYLAXIS
     Dosage: DAILY FOR 10 DAYS, 16 DECEMBER TO 26 DECEMBER, YEAR UNSPECIFIED.
     Route: 065

REACTIONS (7)
  - AGITATION [None]
  - ANXIETY [None]
  - DELUSION [None]
  - DEPRESSION [None]
  - DISORIENTATION [None]
  - HALLUCINATION [None]
  - PSYCHOTIC DISORDER [None]
